FAERS Safety Report 20785953 (Version 1)
Quarter: 2022Q2

REPORT INFORMATION
  Report Type: Spontaneous
  Country: US (occurrence: None)
  Receive Date: 20220504
  Receipt Date: 20220504
  Transmission Date: 20220720
  Serious: No
  Sender: FDA-Public Use
  Company Number: US-ROCHE-2974839

PATIENT
  Age: 53 Year
  Sex: Male
  Weight: 106.69 kg

DRUGS (1)
  1. OCREVUS [Suspect]
     Active Substance: OCRELIZUMAB
     Indication: Primary progressive multiple sclerosis
     Dosage: YES
     Route: 042

REACTIONS (1)
  - Vitamin D decreased [Unknown]

NARRATIVE: CASE EVENT DATE: 20211201
